FAERS Safety Report 15008474 (Version 2)
Quarter: 2018Q2

REPORT INFORMATION
  Report Type: Spontaneous
  Country: US (occurrence: US)
  Receive Date: 20180613
  Receipt Date: 20180623
  Transmission Date: 20180711
  Serious: Yes (Hospitalization, Other)
  Sender: FDA-Public Use
  Company Number: US-OTSUKA-2018_015754

PATIENT
  Sex: Male

DRUGS (3)
  1. ABILIFY [Suspect]
     Active Substance: ARIPIPRAZOLE
     Indication: BIPOLAR DISORDER
     Dosage: UNK (30 MG - 60 MG, DAILY)
     Route: 065
     Dates: start: 200707, end: 201510
  2. ABILIFY [Suspect]
     Active Substance: ARIPIPRAZOLE
     Indication: POST-TRAUMATIC STRESS DISORDER
  3. ABILIFY [Suspect]
     Active Substance: ARIPIPRAZOLE
     Indication: ANXIETY

REACTIONS (15)
  - Obsessive-compulsive disorder [Recovered/Resolved]
  - Theft [Unknown]
  - Shoplifting [Unknown]
  - Product use in unapproved indication [Unknown]
  - Neuropsychiatric symptoms [Unknown]
  - Compulsive shopping [Recovered/Resolved]
  - Gambling disorder [Recovered/Resolved]
  - Economic problem [Unknown]
  - Bankruptcy [Unknown]
  - Mental disorder [Unknown]
  - Emotional distress [Unknown]
  - Loss of employment [Unknown]
  - Suicide attempt [Recovered/Resolved]
  - Suicidal ideation [Recovered/Resolved]
  - Injury [Unknown]
